FAERS Safety Report 5968603-0 (Version None)
Quarter: 2008Q4

REPORT INFORMATION
  Report Type: 
  Country: None (occurrence: None)
  Receive Date: 20081126
  Receipt Date: 20081114
  Transmission Date: 20090506
  Serious: Yes (Hospitalization, Other)
  Sender: FDA-Public Use
  Company Number: NL-MERCK-0811NLD00009

PATIENT
  Sex: Female

DRUGS (2)
  1. COZAAR [Suspect]
     Indication: HYPERTENSION
     Route: 048
  2. ACENOCOUMAROL [Suspect]
     Route: 065

REACTIONS (5)
  - DEMENTIA [None]
  - DIZZINESS [None]
  - FATIGUE [None]
  - SKIN ULCER [None]
  - WOUND INFECTION [None]
